FAERS Safety Report 5858094-2 (Version None)
Quarter: 2008Q3

REPORT INFORMATION
  Report Type: 
  Country: None (occurrence: None)
  Receive Date: 20080822
  Receipt Date: 20080807
  Transmission Date: 20090109
  Serious: Yes (Hospitalization, Other)
  Sender: FDA-Public Use
  Company Number: 2008BM000125

PATIENT
  Age: 5 Year
  Sex: Male
  Weight: 13.5 kg

DRUGS (3)
  1. NAGLAZYME [Suspect]
     Indication: MUCOPOLYSACCHARIDOSIS VI
     Dosage: MG; QW; IVDRIP; IVDRIP
     Route: 041
     Dates: start: 20070201, end: 20080610
  2. NAGLAZYME [Suspect]
     Indication: MUCOPOLYSACCHARIDOSIS VI
     Dosage: MG; QW; IVDRIP; IVDRIP
     Route: 041
     Dates: start: 20080601
  3. DOLIPRANE [Concomitant]

REACTIONS (2)
  - NEPHRITIC SYNDROME [None]
  - NEPHROTIC SYNDROME [None]
